FAERS Safety Report 17634988 (Version 3)
Quarter: 2020Q3

REPORT INFORMATION
  Report Type: Spontaneous
  Country: US (occurrence: US)
  Receive Date: 20200407
  Receipt Date: 20200701
  Transmission Date: 20201102
  Serious: No
  Sender: FDA-Public Use
  Company Number: US-BAUSCH-BL-2020-008198

PATIENT
  Sex: Female

DRUGS (1)
  1. METROGEL VAGINAL [Suspect]
     Active Substance: METRONIDAZOLE
     Indication: PRODUCT USED FOR UNKNOWN INDICATION
     Dosage: FOR 5 APPLICATORS  ONE FOR EACH DAY
     Route: 065
     Dates: start: 202002

REACTIONS (2)
  - Injury [Unknown]
  - Device issue [Unknown]

NARRATIVE: CASE EVENT DATE: 202002
